FAERS Safety Report 18186844 (Version 2)
Quarter: 2020Q3

REPORT INFORMATION
  Report Type: Spontaneous
  Country: US (occurrence: US)
  Receive Date: 20200824
  Receipt Date: 20200826
  Transmission Date: 20201103
  Serious: No
  Sender: FDA-Public Use
  Company Number: US-PFIZER INC-2020324134

PATIENT
  Age: 44 Year
  Sex: Female
  Weight: 81.65 kg

DRUGS (1)
  1. CELEBREX [Suspect]
     Active Substance: CELECOXIB
     Indication: ARTHRITIS
     Dosage: 200 MG, AS NEEDED (2 TIMES DAILY WITH FOOD AS NEEDED)
     Route: 048
     Dates: start: 20200108

REACTIONS (7)
  - Urticaria [Not Recovered/Not Resolved]
  - Arthralgia [Unknown]
  - Arthropod bite [Unknown]
  - Product use in unapproved indication [Unknown]
  - Off label use [Unknown]
  - Food allergy [Not Recovered/Not Resolved]
  - Pruritus [Unknown]

NARRATIVE: CASE EVENT DATE: 20200108
